FAERS Safety Report 5326207-7 (Version None)
Quarter: 2007Q2

REPORT INFORMATION
  Report Type: 
  Country: None (occurrence: None)
  Receive Date: 20070508
  Receipt Date: 20070424
  Transmission Date: 20071010
  Serious: Yes (Other)
  Sender: FDA-Public Use
  Company Number: 2007BH003859

PATIENT
  Age: 77 Year
  Sex: Female

DRUGS (8)
  1. VANCOMYCIN [Suspect]
     Indication: PYREXIA
     Dosage: IV
     Route: 042
  2. ACENOCOUMAROL [Concomitant]
  3. SPIRONOLACTONE [Concomitant]
  4. LEVOTHYROXINE SODIUM [Concomitant]
  5. BUMETANIDE [Concomitant]
  6. LOSARTAN POSTASSIUM [Concomitant]
  7. FERROFUMARATE [Concomitant]
  8. RIFAMPICIN [Concomitant]

REACTIONS (7)
  - BLISTER [None]
  - BURNING SENSATION [None]
  - DRUG TOXICITY [None]
  - ERYTHEMA [None]
  - HAEMORRHAGE [None]
  - PAIN [None]
  - SKIN LESION [None]
